FAERS Safety Report 9648353 (Version 1)
Quarter: 2013Q4

REPORT INFORMATION
  Report Type: Spontaneous
  Country: FR (occurrence: FR)
  Receive Date: 20131028
  Receipt Date: 20131028
  Transmission Date: 20140711
  Serious: Yes (Hospitalization)
  Sender: FDA-Public Use
  Company Number: FR-NOVOPROD-390579

PATIENT
  Age: 83 Year
  Sex: Female

DRUGS (2)
  1. NOVONORM [Suspect]
     Indication: PRODUCT USED FOR UNKNOWN INDICATION
     Dosage: UNK
     Route: 048
     Dates: start: 20130830, end: 20130916
  2. JANUMET [Suspect]
     Indication: PRODUCT USED FOR UNKNOWN INDICATION
     Dosage: UNK
     Route: 065
     Dates: start: 2012, end: 20130916

REACTIONS (2)
  - Fall [Recovered/Resolved]
  - Hypoglycaemia [Recovered/Resolved]
